FAERS Safety Report 9858097 (Version 6)
Quarter: 2015Q2

REPORT INFORMATION
  Report Type: Spontaneous
  Country: US (occurrence: US)
  Receive Date: 20140131
  Receipt Date: 20150430
  Transmission Date: 20150821
  Serious: Yes (Hospitalization, Other)
  Sender: FDA-Public Use
  Company Number: US-009507513-1401USA012012

PATIENT
  Sex: Female

DRUGS (2)
  1. FOSAMAX [Suspect]
     Active Substance: ALENDRONATE SODIUM
     Indication: OSTEOPOROSIS
     Dosage: 70 MG, QW
     Route: 048
     Dates: start: 20021002, end: 200807
  2. ALENDRONATE SODIUM. [Suspect]
     Active Substance: ALENDRONATE SODIUM
     Indication: OSTEOPOROSIS
     Dosage: 70 MG, QW
     Route: 048
     Dates: start: 200807, end: 201008

REACTIONS (11)
  - Haematoma [Unknown]
  - Spinal osteoarthritis [Unknown]
  - Headache [Unknown]
  - Femur fracture [Unknown]
  - Adverse drug reaction [Unknown]
  - Alopecia [Unknown]
  - Intervertebral disc degeneration [Unknown]
  - Contusion [Unknown]
  - Leukocytosis [Unknown]
  - Intramedullary rod insertion [Unknown]
  - Fall [Unknown]

NARRATIVE: CASE EVENT DATE: 20101224
